FAERS Safety Report 13113830 (Version 1)
Quarter: 2017Q1

REPORT INFORMATION
  Report Type: Spontaneous
  Country: US (occurrence: US)
  Receive Date: 20170113
  Receipt Date: 20170113
  Transmission Date: 20170428
  Serious: No
  Sender: FDA-Public Use
  Company Number: US-BRISTOL-MYERS SQUIBB COMPANY-BMS-2017-001530

PATIENT
  Sex: Female

DRUGS (1)
  1. SPRYCEL [Suspect]
     Active Substance: DASATINIB
     Indication: FIBROUS DYSPLASIA OF BONE
     Dosage: 100 MG, UNK
     Route: 065
     Dates: start: 20150715

REACTIONS (2)
  - Product use issue [Unknown]
  - Eyelid oedema [Unknown]
